FAERS Safety Report 17603968 (Version 3)
Quarter: 2022Q1

REPORT INFORMATION
  Report Type: Report from Study
  Country: DE (occurrence: DE)
  Receive Date: 20200331
  Receipt Date: 20220120
  Transmission Date: 20220424
  Serious: Yes (Hospitalization, Other)
  Sender: FDA-Public Use
  Company Number: DE-ABBVIE-20K-062-3344747-00

PATIENT
  Age: 54 Year
  Sex: Female
  Weight: 42 kg

DRUGS (9)
  1. HUMIRA [Suspect]
     Active Substance: ADALIMUMAB
     Indication: Rheumatoid arthritis
     Route: 058
     Dates: start: 20160607
  2. HUMIRA [Suspect]
     Active Substance: ADALIMUMAB
     Indication: Psoriatic arthropathy
     Route: 058
     Dates: start: 20170129, end: 202003
  3. HUMIRA [Suspect]
     Active Substance: ADALIMUMAB
     Route: 058
     Dates: start: 20200329
  4. ASCORBIC ACID [Suspect]
     Active Substance: ASCORBIC ACID
     Indication: Product used for unknown indication
     Route: 065
  5. TRAMADOL [Suspect]
     Active Substance: TRAMADOL
     Indication: Product used for unknown indication
     Route: 065
  6. BISOPROLOL [Concomitant]
     Active Substance: BISOPROLOL
     Indication: Product used for unknown indication
  7. ESOMEPRAZOLE [Concomitant]
     Active Substance: ESOMEPRAZOLE
     Indication: Product used for unknown indication
  8. OPIPRAMOL [Concomitant]
     Active Substance: OPIPRAMOL
     Indication: Product used for unknown indication
     Dosage: 0.5-0.5-1
  9. CIPROFLOXACIN [Concomitant]
     Active Substance: CIPROFLOXACIN
     Indication: Diarrhoea
     Dates: start: 201902, end: 201904

REACTIONS (53)
  - Hepatic steatosis [Unknown]
  - Granular cell tumour [Recovered/Resolved]
  - Granular cell tumour [Unknown]
  - Oesophageal neoplasm [Unknown]
  - Ovarian cyst [Unknown]
  - Tachycardia [Unknown]
  - Abdominal pain [Unknown]
  - Abdominal pain [Recovered/Resolved]
  - Diarrhoea [Unknown]
  - Granular cell tumour [Recovered/Resolved]
  - Diarrhoea [Unknown]
  - Mobility decreased [Not Recovered/Not Resolved]
  - Intentional product misuse [Not Recovered/Not Resolved]
  - Immunosuppression [Unknown]
  - Food intolerance [Unknown]
  - Drug intolerance [Unknown]
  - Blood urea decreased [Unknown]
  - Blood potassium increased [Recovered/Resolved]
  - Colitis microscopic [Recovering/Resolving]
  - Haemoglobinuria [Unknown]
  - pH urine decreased [Unknown]
  - Activated partial thromboplastin time shortened [Unknown]
  - Ectopic gastric mucosa [Unknown]
  - Chronic gastritis [Unknown]
  - Oesophageal polyp [Unknown]
  - Colitis [Unknown]
  - Bladder diverticulum [Unknown]
  - Ureterocele [Unknown]
  - Blood elastase [Unknown]
  - Weight decreased [Unknown]
  - Asthenia [Unknown]
  - Red blood cell count increased [Unknown]
  - Haemoglobin increased [Unknown]
  - Blood elastase decreased [Unknown]
  - Gastric mucosa erythema [Unknown]
  - Acute oesophageal mucosal lesion [Unknown]
  - Volvulus [Unknown]
  - Large intestinal stenosis [Unknown]
  - Gastrointestinal tract mucosal pigmentation [Unknown]
  - Gastrooesophageal reflux disease [Unknown]
  - Urine ketone body present [Unknown]
  - Uterine leiomyoma [Unknown]
  - Unevaluable event [Unknown]
  - Aspartate aminotransferase increased [Unknown]
  - Blood cholesterol increased [Unknown]
  - Blood triglycerides increased [Unknown]
  - Haematuria [Unknown]
  - Enterobiasis [Unknown]
  - Oesophageal papilloma [Unknown]
  - Fibroma [Unknown]
  - Red blood cell count decreased [Unknown]
  - Unevaluable event [Unknown]
  - Pain in extremity [Not Recovered/Not Resolved]

NARRATIVE: CASE EVENT DATE: 20180601
